FAERS Safety Report 9913740 (Version 1)
Quarter: 2014Q1

REPORT INFORMATION
  Report Type: Spontaneous
  Country: US (occurrence: None)
  Receive Date: 20140218
  Receipt Date: 20140218
  Transmission Date: 20141002
  Serious: Yes (Hospitalization, Disabling, Other)
  Sender: FDA-Public Use
  Company Number: 1402-0285

PATIENT
  Age: 70 Year
  Sex: Male

DRUGS (6)
  1. EYLEA [Suspect]
     Indication: MACULAR DEGENERATION
     Dosage: EVERY 3RD WEEK ALTERNATING EYES.
     Dates: end: 201306
  2. BIPOLAR MEDS [Concomitant]
  3. BROMADAY (BROMFENAC SODIUM) [Concomitant]
  4. DUREZOL (DIFLUPREDNATE) [Concomitant]
  5. VITAMINS (KAPSOVIT) [Concomitant]
  6. EYE DROPS (TETRYZOLINE HYDROCHLORIDE) [Concomitant]

REACTIONS (8)
  - Visual impairment [None]
  - Suicide attempt [None]
  - Fall [None]
  - Multiple injuries [None]
  - Femur fracture [None]
  - Hand fracture [None]
  - Head injury [None]
  - Aphasia [None]
